FAERS Safety Report 21976898 (Version 2)
Quarter: 2023Q2

REPORT INFORMATION
  Report Type: Spontaneous
  Country: US (occurrence: US)
  Receive Date: 20230210
  Receipt Date: 20230406
  Transmission Date: 20230722
  Serious: No
  Sender: FDA-Public Use
  Company Number: US-ABBVIE-4260971

PATIENT
  Age: 75 Year
  Sex: Female
  Weight: 71.213 kg

DRUGS (5)
  1. LEVOTHYROXINE [Suspect]
     Active Substance: LEVOTHYROXINE
     Indication: Hypothyroidism
     Dosage: 44  ?FORM STRENGTH: 88 MICROGRAM
     Route: 048
     Dates: start: 202301
  2. LEVOTHYROXINE [Suspect]
     Active Substance: LEVOTHYROXINE
     Indication: Hypothyroidism
     Dosage: FORM STRENGTH: 75 MICROGRAM?AGAIN DRUG STARTED: DEC 2022
     Route: 048
     Dates: end: 202301
  3. LEVOTHYROXINE [Suspect]
     Active Substance: LEVOTHYROXINE
     Indication: Hypothyroidism
     Dosage: FORM STRENGTH: 88 MICROGRAM
     Route: 048
     Dates: start: 202211, end: 20221215
  4. OLMESARTAN MEDOXOMIL [Concomitant]
     Active Substance: OLMESARTAN MEDOXOMIL
     Indication: Blood pressure management
  5. DILTIAZEM [Concomitant]
     Active Substance: DILTIAZEM
     Indication: Blood pressure management

REACTIONS (5)
  - Tremor [Recovered/Resolved]
  - Feeling jittery [Recovered/Resolved]
  - Hyperthyroidism [Unknown]
  - Blood thyroid stimulating hormone decreased [Recovering/Resolving]
  - Headache [Recovered/Resolved]

NARRATIVE: CASE EVENT DATE: 20221201
